FAERS Safety Report 4983126-3 (Version None)
Quarter: 2006Q2

REPORT INFORMATION
  Report Type: 
  Country: None (occurrence: None)
  Receive Date: 20060420
  Receipt Date: 20060411
  Transmission Date: 20061013
  Serious: Yes (Other)
  Sender: FDA-Public Use
  Company Number: 2006050291

PATIENT
  Sex: Female
  Weight: 84.8226 kg

DRUGS (10)
  1. AMLODIPINE [Suspect]
     Indication: HYPERTENSION
     Dosage: QD INTERVAL: EVERY DAY)
  2. ALTACE [Concomitant]
  3. PLAVIX [Concomitant]
  4. POTASSIUM (POTASSIUM) [Concomitant]
  5. ZOCOR [Concomitant]
  6. FOLTX (CYANOCOBALAMIN, FOLIC ACID, PYRIDOXINE) [Concomitant]
  7. CLORAZEPATE (CLORAZEPATE DIPOTASSIUM) [Concomitant]
  8. ACTONEL [Concomitant]
  9. NAPROXEN (NAROXEN) [Concomitant]
  10. METOCLOPRAMIDE [Concomitant]

REACTIONS (4)
  - BRAIN NEOPLASM [None]
  - PAIN [None]
  - RENAL CELL CARCINOMA STAGE UNSPECIFIED [None]
  - TREMOR [None]
